FAERS Safety Report 24806695 (Version 3)
Quarter: 2025Q1

REPORT INFORMATION
  Report Type: Spontaneous
  Country: US (occurrence: US)
  Receive Date: 20250104
  Receipt Date: 20250301
  Transmission Date: 20250409
  Serious: Yes (Other)
  Sender: SANOFI AVENTIS
  Company Number: US-SA-2025SA002186

PATIENT
  Age: 78 Year
  Sex: Male
  Weight: 85.45 kg

DRUGS (4)
  1. DUPIXENT [Suspect]
     Active Substance: DUPILUMAB
     Indication: Dermatitis atopic
     Dosage: 300 MG, QOW
     Route: 058
     Dates: start: 20241010
  2. COSMETICS [Concomitant]
     Active Substance: COSMETICS
     Dosage: UNK, QD
  3. METAMUCIL [Concomitant]
     Active Substance: PLANTAGO SEED
  4. PREDNISONE [Concomitant]
     Active Substance: PREDNISONE

REACTIONS (4)
  - Sepsis [Recovering/Resolving]
  - Illness [Recovering/Resolving]
  - Weight increased [Unknown]
  - Rash [Not Recovered/Not Resolved]

NARRATIVE: CASE EVENT DATE: 20240101
